FAERS Safety Report 10974722 (Version 1)
Quarter: 2015Q2

REPORT INFORMATION
  Report Type: Spontaneous
  Country: IT (occurrence: IT)
  Receive Date: 20150401
  Receipt Date: 20150401
  Transmission Date: 20150821
  Serious: Yes (Other)
  Sender: FDA-Public Use
  Company Number: IT-JNJFOC-20150318392

PATIENT
  Age: 67 Year
  Sex: Female

DRUGS (3)
  1. RISPERDAL [Suspect]
     Active Substance: RISPERIDONE
     Indication: DRUG ABUSE
     Route: 048
     Dates: start: 20150323, end: 20150323
  2. MINIAS [Suspect]
     Active Substance: LORMETAZEPAM
     Indication: DRUG ABUSE
     Route: 048
     Dates: start: 20150323, end: 20150323
  3. ANAFRANIL [Suspect]
     Active Substance: CLOMIPRAMINE HYDROCHLORIDE
     Indication: DRUG ABUSE
     Route: 048
     Dates: start: 20150323, end: 20150323

REACTIONS (3)
  - Drug abuse [Unknown]
  - Sopor [Unknown]
  - Intentional overdose [Unknown]

NARRATIVE: CASE EVENT DATE: 20150323
